FAERS Safety Report 19475785 (Version 1)
Quarter: 2021Q2

REPORT INFORMATION
  Report Type: Report from Study
  Country: US (occurrence: US)
  Receive Date: 20210630
  Receipt Date: 20210630
  Transmission Date: 20210717
  Serious: Yes (Hospitalization)
  Sender: FDA-Public Use
  Company Number: US-ALNYLAM PHARMACEUTICALS, INC.-ALN-2021-001455

PATIENT

DRUGS (4)
  1. OXYCODONE HYDROCHLORIDE. [Concomitant]
     Active Substance: OXYCODONE HYDROCHLORIDE
     Indication: PRODUCT USED FOR UNKNOWN INDICATION
     Dosage: 15 MILLIGRAM (TABLET)
     Route: 065
  2. ZOFRAN [Concomitant]
     Active Substance: ONDANSETRON HYDROCHLORIDE
     Indication: PRODUCT USED FOR UNKNOWN INDICATION
     Dosage: 4 MILLIGRAM (TABLET)
     Route: 065
  3. GIVLAARI [Suspect]
     Active Substance: GIVOSIRAN SODIUM
     Indication: PORPHYRIA
     Dosage: 1.2 MILLILITER, MONTHLY
     Route: 058
     Dates: start: 202011
  4. ATENOLOL. [Concomitant]
     Active Substance: ATENOLOL
     Indication: PRODUCT USED FOR UNKNOWN INDICATION
     Dosage: 25 MILLIGRAM (TABLET)
     Route: 065

REACTIONS (11)
  - Malaise [Unknown]
  - Drug ineffective [Unknown]
  - Stress [Unknown]
  - Weight decreased [Unknown]
  - Hospitalisation [Unknown]
  - Muscle atrophy [Unknown]
  - Mobility decreased [Unknown]
  - Product dose omission issue [Unknown]
  - Porphyria acute [Unknown]
  - Fasting [Unknown]
  - Asthenia [Unknown]

NARRATIVE: CASE EVENT DATE: 202106
